FAERS Safety Report 5278088-8 (Version None)
Quarter: 2007Q1

REPORT INFORMATION
  Report Type: 
  Country: None (occurrence: None)
  Receive Date: 20061213
  Receipt Date: 20060317
  Transmission Date: 20070707
  Serious: Yes (Hospitalization)
  Sender: FDA-Public Use
  Company Number: 2006UW04607

PATIENT
  Age: 84 Year
  Sex: Male

DRUGS (2)
  1. SEROQUEL [Suspect]
     Indication: DEPRESSION
     Dosage: 700 MG PO
     Route: 048
     Dates: start: 20060302
  2. SEROQUEL [Suspect]
     Indication: DEPRESSION
     Dosage: 200 MG PO
     Route: 048
     Dates: start: 20050301, end: 20060302

REACTIONS (4)
  - ABASIA [None]
  - APHASIA [None]
  - HYPERGLYCAEMIA [None]
  - MENTAL STATUS CHANGES [None]
